FAERS Safety Report 9632030 (Version 1)
Quarter: 2013Q4

REPORT INFORMATION
  Report Type: Spontaneous
  Country: US (occurrence: None)
  Receive Date: 20131017
  Receipt Date: 20131017
  Transmission Date: 20140711
  Serious: Yes (Other)
  Sender: FDA-Public Use
  Company Number: None

PATIENT
  Age: 12 Year
  Sex: Male
  Weight: 48.99 kg

DRUGS (1)
  1. CELESTONE [Suspect]
     Indication: DERMATITIS CONTACT
     Route: 030
     Dates: start: 20130909

REACTIONS (14)
  - Headache [None]
  - Abdominal pain upper [None]
  - Dark circles under eyes [None]
  - Incontinence [None]
  - Confusional state [None]
  - Convulsion [None]
  - Hyperventilation [None]
  - Heart rate increased [None]
  - Blood pressure increased [None]
  - Tremor [None]
  - Psychosomatic disease [None]
  - Chest pain [None]
  - Neck pain [None]
  - Conversion disorder [None]
